FAERS Safety Report 13912046 (Version 1)
Quarter: 2017Q3

REPORT INFORMATION
  Report Type: Spontaneous
  Country: US (occurrence: US)
  Receive Date: 20170828
  Receipt Date: 20170828
  Transmission Date: 20171127
  Serious: No
  Sender: FDA-Public Use
  Company Number: US-ROCHE-GNE302233

PATIENT
  Age: 87 Year
  Sex: Female

DRUGS (4)
  1. NUTROPIN AQ [Suspect]
     Active Substance: SOMATROPIN
     Dosage: 0.4 MG, UNK
     Route: 065
  2. NUTROPIN AQ [Suspect]
     Active Substance: SOMATROPIN
     Indication: DRUG THERAPY
     Dosage: 0.2 MG, UNK
     Route: 058
     Dates: start: 20100209
  3. NUTROPIN AQ [Suspect]
     Active Substance: SOMATROPIN
     Dosage: 0.6 MG, UNK
     Route: 065
  4. NUTROPIN AQ PEN [Suspect]
     Active Substance: SOMATROPIN
     Indication: DRUG THERAPY
     Route: 065

REACTIONS (1)
  - Thyroid hormones decreased [Unknown]
